FAERS Safety Report 9591804 (Version 2)
Quarter: 2013Q4

REPORT INFORMATION
  Report Type: Spontaneous
  Country: US (occurrence: US)
  Receive Date: 20131004
  Receipt Date: 20131004
  Transmission Date: 20140711
  Serious: Yes (Other)
  Sender: FDA-Public Use
  Company Number: US-AMGEN-USASP2012066568

PATIENT
  Age: 49 Year
  Sex: Male

DRUGS (2)
  1. ENBREL [Suspect]
     Indication: RHEUMATOID ARTHRITIS
     Dosage: 50 MG, QWK
     Dates: start: 20120418, end: 201211
  2. METHOTREXATE [Concomitant]
     Dosage: UNK

REACTIONS (9)
  - Lung infection [Recovered/Resolved]
  - Pharyngitis [Recovered/Resolved]
  - Localised infection [Recovered/Resolved]
  - Ear infection [Recovered/Resolved]
  - Eye infection [Recovered/Resolved]
  - Sinus disorder [Not Recovered/Not Resolved]
  - Cough [Not Recovered/Not Resolved]
  - Oropharyngeal pain [Not Recovered/Not Resolved]
  - Non-cardiac chest pain [Not Recovered/Not Resolved]
